FAERS Safety Report 5924526-4 (Version None)
Quarter: 2008Q4

REPORT INFORMATION
  Report Type: 
  Country: None (occurrence: None)
  Receive Date: 20081020
  Receipt Date: 20081014
  Transmission Date: 20090506
  Serious: Yes (Death, Congenital Anomaly)
  Sender: FDA-Public Use
  Company Number: GB-ELI_LILLY_AND_COMPANY-GB200803005834

PATIENT

DRUGS (8)
  1. ZYPREXA [Suspect]
     Indication: BORDERLINE PERSONALITY DISORDER
     Dosage: 2.5 MG, UNK
     Route: 064
     Dates: start: 20070401, end: 20070401
  2. ZYPREXA [Suspect]
     Dosage: 5 MG, UNK
     Route: 064
     Dates: start: 20070401, end: 20070501
  3. ZYPREXA [Suspect]
     Dosage: 10 MG, UNK
     Route: 064
     Dates: start: 20070501
  4. DEFIXAL [Concomitant]
     Dosage: 40 MG, 2/W
  5. CITALOPRAM HYDROBROMIDE [Concomitant]
     Dosage: 20 MG, UNK
  6. FOLIC ACID [Concomitant]
     Dosage: 400 UG, DAILY (1/D)
  7. SEREVENT [Concomitant]
     Dosage: 50 UG, 2/D
  8. FLOVENT [Concomitant]
     Dosage: 250 UG, DAILY (1/D)

REACTIONS (3)
  - DRUG EXPOSURE DURING PREGNANCY [None]
  - POTTER'S SYNDROME [None]
  - URETHRAL VALVES [None]
